FAERS Safety Report 23285564 (Version 3)
Quarter: 2024Q1

REPORT INFORMATION
  Report Type: Report from Study
  Country: TW (occurrence: TW)
  Receive Date: 20231212
  Receipt Date: 20240202
  Transmission Date: 20240410
  Serious: Yes (Life-Threatening, Hospitalization)
  Sender: FDA-Public Use
  Company Number: TW-ABBVIE-5528876

PATIENT
  Age: 49 Year
  Sex: Female
  Weight: 59 kg

DRUGS (1)
  1. HUMIRA [Suspect]
     Active Substance: ADALIMUMAB
     Indication: Rheumatoid arthritis
     Route: 058
     Dates: start: 20230718, end: 20231121

REACTIONS (5)
  - Respiratory failure [Unknown]
  - Pneumonia [Unknown]
  - Splenic abscess [Unknown]
  - Pulmonary tuberculosis [Unknown]
  - Asthma [Unknown]

NARRATIVE: CASE EVENT DATE: 20231203
